FAERS Safety Report 23959851 (Version 1)
Quarter: 2024Q2

REPORT INFORMATION
  Report Type: Report from Study
  Country: CA (occurrence: CA)
  Receive Date: 20240611
  Receipt Date: 20240611
  Transmission Date: 20240716
  Serious: Yes (Death)
  Sender: FDA-Public Use
  Company Number: CA-BEH-2024173289

PATIENT
  Age: 72 Year
  Sex: Female
  Weight: 70.4 kg

DRUGS (7)
  1. BERINERT [Suspect]
     Active Substance: HUMAN C1-ESTERASE INHIBITOR
     Indication: Hereditary angioedema
     Dosage: 1500 IU, BIW
     Route: 042
     Dates: start: 20170616
  2. BERINERT [Suspect]
     Active Substance: HUMAN C1-ESTERASE INHIBITOR
     Indication: Hereditary angioedema
     Dosage: 1500 IU, BIW
     Route: 042
     Dates: start: 20170616
  3. BERINERT [Suspect]
     Active Substance: HUMAN C1-ESTERASE INHIBITOR
     Indication: Prophylaxis
     Dosage: 1500 IU, PRN
     Route: 042
     Dates: start: 20170616
  4. BERINERT [Suspect]
     Active Substance: HUMAN C1-ESTERASE INHIBITOR
     Indication: Prophylaxis
     Dosage: 1500 IU, PRN
     Route: 042
     Dates: start: 20170616
  5. METFORMIN [Concomitant]
     Active Substance: METFORMIN HYDROCHLORIDE
  6. VITAMINS [Concomitant]
     Active Substance: VITAMINS
  7. ATIVAN [Concomitant]
     Active Substance: LORAZEPAM

REACTIONS (2)
  - Death [Fatal]
  - Off label use [Unknown]

NARRATIVE: CASE EVENT DATE: 20231001
